FAERS Safety Report 11921889 (Version 2)
Quarter: 2016Q1

REPORT INFORMATION
  Report Type: Spontaneous
  Country: NL (occurrence: NL)
  Receive Date: 20160115
  Receipt Date: 20160217
  Transmission Date: 20160526
  Serious: No
  Sender: FDA-Public Use
  Company Number: NL-ASTRAZENECA-2015SF05787

PATIENT
  Age: 27766 Day
  Sex: Female

DRUGS (2)
  1. FASLODEX [Suspect]
     Active Substance: FULVESTRANT
     Indication: BREAST CANCER METASTATIC
     Dosage: 50 MG/ML WWSP 5ML 2X, 1X PER 4 WEEKS
     Route: 030
     Dates: start: 20150925
  2. FASLODEX [Suspect]
     Active Substance: FULVESTRANT
     Indication: BREAST CANCER METASTATIC
     Dosage: 50 MG/ML WWSP 5ML 2X, 1X PER 4 WEEKS
     Route: 030
     Dates: start: 20151026

REACTIONS (1)
  - Bone pain [Unknown]

NARRATIVE: CASE EVENT DATE: 20151026
